FAERS Safety Report 13527522 (Version 1)
Quarter: 2017Q2

REPORT INFORMATION
  Report Type: Spontaneous
  Country: US (occurrence: US)
  Receive Date: 20170509
  Receipt Date: 20170509
  Transmission Date: 20170830
  Serious: Yes (Other)
  Sender: FDA-Public Use
  Company Number: None

PATIENT
  Age: 84 Year
  Sex: Female
  Weight: 53.07 kg

DRUGS (13)
  1. LOSARTAN. [Concomitant]
     Active Substance: LOSARTAN
  2. LUTEIN [Concomitant]
     Active Substance: LUTEIN
  3. TMP/SMZ DS 160-800MG TAB (AUROBINDO) [Suspect]
     Active Substance: SULFAMETHOXAZOLE\TRIMETHOPRIM
     Indication: COUGH
     Dosage: FREQUENCY - 2 X A DAY X 10
     Route: 048
     Dates: start: 20170202, end: 20170208
  4. VITAMINS NOS [Concomitant]
     Active Substance: VITAMINS
  5. ZOCOR [Concomitant]
     Active Substance: SIMVASTATIN
  6. IRON GLYCINATE [Concomitant]
  7. TMP/SMZ DS 160-800MG TAB (AUROBINDO) [Suspect]
     Active Substance: SULFAMETHOXAZOLE\TRIMETHOPRIM
     Indication: OROPHARYNGEAL PAIN
     Dosage: FREQUENCY - 2 X A DAY X 10
     Route: 048
     Dates: start: 20170202, end: 20170208
  8. OXYCODONE [Concomitant]
     Active Substance: OXYCODONE
  9. BILLBERRY [Concomitant]
  10. PERCOCET ER [Concomitant]
  11. ACETAMINOPHEN. [Concomitant]
     Active Substance: ACETAMINOPHEN
  12. ONE-A-DAY VITAMINS [Concomitant]
  13. MAGNESIUM [Concomitant]
     Active Substance: MAGNESIUM

REACTIONS (3)
  - Musculoskeletal pain [None]
  - Arthralgia [None]
  - Tendonitis [None]

NARRATIVE: CASE EVENT DATE: 20170208
